FAERS Safety Report 5681943-8 (Version None)
Quarter: 2008Q1

REPORT INFORMATION
  Report Type: 
  Country: None (occurrence: None)
  Receive Date: 20080327
  Receipt Date: 20070328
  Transmission Date: 20080703
  Serious: No
  Sender: FDA-Public Use
  Company Number: US-BAYER-US-2007-011202

PATIENT
  Sex: Female
  Weight: 70 kg

DRUGS (2)
  1. MIRENA [Suspect]
     Indication: CONTRACEPTION
     Route: 015
     Dates: start: 20070326
  2. BENICAR [Concomitant]
     Dosage: UNIT DOSE: 20 MG

REACTIONS (2)
  - PELVIC DISCOMFORT [None]
  - PROCEDURAL PAIN [None]
